FAERS Safety Report 5450326-8 (Version None)
Quarter: 2007Q3

REPORT INFORMATION
  Report Type: 
  Country: None (occurrence: None)
  Receive Date: 20070912
  Receipt Date: 20070904
  Transmission Date: 20080115
  Serious: Yes (Death, Hospitalization)
  Sender: FDA-Public Use
  Company Number: GB-PFIZER INC-2007066019

PATIENT
  Sex: Male

DRUGS (8)
  1. DOFETILIDE [Suspect]
     Indication: ATRIAL FIBRILLATION
     Route: 048
     Dates: start: 20070806, end: 20070806
  2. ATORVASTATIN [Concomitant]
     Indication: HYPERCHOLESTEROLAEMIA
     Route: 048
  3. WARFARIN SODIUM [Concomitant]
     Indication: PROPHYLAXIS
     Route: 048
  4. FRUSEMIDE [Concomitant]
     Route: 048
  5. CANDESARTAN CILEXETIL [Concomitant]
     Indication: CARDIOMYOPATHY
     Route: 048
  6. SPIRONOLACTONE [Concomitant]
     Indication: OEDEMA
     Route: 048
  7. VERAPAMIL [Concomitant]
     Indication: ARRHYTHMIA
     Dosage: DAILY DOSE:120MG
     Route: 048
  8. LEVOTHYROXINE SODIUM [Concomitant]
     Indication: HYPOTHYROIDISM
     Dosage: DAILY DOSE:125MCG
     Route: 048

REACTIONS (6)
  - BLOOD PRESSURE DECREASED [None]
  - CYANOSIS [None]
  - FRIEDREICH'S ATAXIA [None]
  - INTESTINAL ISCHAEMIA [None]
  - METABOLIC ACIDOSIS [None]
  - RENAL FAILURE ACUTE [None]
